FAERS Safety Report 19486150 (Version 2)
Quarter: 2021Q3

REPORT INFORMATION
  Report Type: Spontaneous
  Country: US (occurrence: US)
  Receive Date: 20210702
  Receipt Date: 20210716
  Transmission Date: 20211014
  Serious: Yes (Other)
  Sender: FDA-Public Use
  Company Number: US-AMGEN-USASP2021099095

PATIENT
  Age: 68 Year
  Sex: Female
  Weight: 57.14 kg

DRUGS (8)
  1. INFLUENZA [Concomitant]
     Active Substance: INFLUENZA VIRUS VACCINE
     Dosage: UNK
     Dates: start: 20191004
  2. COVID?19 VACCINE [Concomitant]
     Dosage: UNK
     Dates: start: 20210112
  3. BUDESONIDE. [Concomitant]
     Active Substance: BUDESONIDE
  4. TRAZODONE [Concomitant]
     Active Substance: TRAZODONE HYDROCHLORIDE
     Dosage: 50 MILLIGRAM, QD
  5. CITRACAL + D3 [Concomitant]
  6. CENTRUM SILVER WOMEN 50+ [Concomitant]
     Active Substance: MINERALS\VITAMINS
     Dosage: 8 MILLIGRAM
  7. PROLIA [Suspect]
     Active Substance: DENOSUMAB
     Indication: OSTEOPOROSIS POSTMENOPAUSAL
     Dosage: 60 MILLIGRAM, Q6MO
     Route: 058
     Dates: start: 20190703
  8. CLONAZEPAM. [Concomitant]
     Active Substance: CLONAZEPAM
     Dosage: 0.25 MILLIGRAM, QD

REACTIONS (5)
  - Nasopharyngitis [Unknown]
  - Carbohydrate antigen 27.29 increased [Recovering/Resolving]
  - Inflammation [Not Recovered/Not Resolved]
  - Drug-induced liver injury [Recovered/Resolved]
  - Oral mucosal blistering [Unknown]

NARRATIVE: CASE EVENT DATE: 20191231
